FAERS Safety Report 7192381 (Version 4)
Quarter: 2013Q1

REPORT INFORMATION
  Report Type: Report from Study
  Country: IT (occurrence: IT)
  Receive Date: 20091130
  Receipt Date: 20130201
  Transmission Date: 20140127
  Serious: Yes (Other)
  Sender: FDA-Public Use
  Company Number: PHHO2009IT14426

PATIENT
  Age: 65 Year
  Sex: Female
  Weight: 75 kg

DRUGS (7)
  1. CERTICAN [Suspect]
     Indication: RENAL TRANSPLANT
     Dosage: 2.25 MG, DAY
     Route: 048
     Dates: start: 20090910, end: 20091117
  2. CICLOSPORIN [Suspect]
     Indication: RENAL TRANSPLANT
     Dosage: 50 MG, BID
     Route: 048
     Dates: start: 20090910
  3. CICLOSPORIN [Suspect]
     Dosage: 700-800 NG/ML
     Route: 048
  4. DELTACORTENE [Suspect]
     Indication: RENAL TRANSPLANT
     Dosage: 5 MG, DAY
     Route: 048
     Dates: start: 20090913
  5. DELTACORTENE [Suspect]
     Dosage: 10 MG, DAY
     Route: 048
  6. PYRAZINAMIDE [Suspect]
     Indication: TUBERCULOSIS
     Dosage: UNK
     Dates: end: 20100122
  7. BACTRIM FORTE [Concomitant]

REACTIONS (5)
  - Pancytopenia [Recovered/Resolved]
  - Asthenia [Recovered/Resolved]
  - Leukopenia [Recovering/Resolving]
  - Thrombocytopenia [Recovering/Resolving]
  - Anaemia [Recovering/Resolving]
